APPROVED DRUG PRODUCT: RISPERIDONE
Active Ingredient: RISPERIDONE
Strength: 0.25MG
Dosage Form/Route: TABLET;ORAL
Application: A076288 | Product #001
Applicant: DASH PHARMACEUTICALS LLC
Approved: Sep 15, 2008 | RLD: No | RS: No | Type: DISCN